FAERS Safety Report 8263114-4 (Version None)
Quarter: 2012Q2

REPORT INFORMATION
  Report Type: 
  Country: None (occurrence: None)
  Receive Date: 20120405
  Receipt Date: 20120402
  Transmission Date: 20120825
  Serious: No
  Sender: FDA-Public Use
  Company Number: US-TEVA-331617USA

PATIENT
  Sex: Male

DRUGS (3)
  1. ROSUVASTATIN [Concomitant]
  2. RANITIDINE HCL [Concomitant]
  3. COPAXONE [Suspect]
     Indication: MULTIPLE SCLEROSIS
     Route: 058
     Dates: start: 20041215

REACTIONS (1)
  - URTICARIA [None]
